FAERS Safety Report 24989710 (Version 1)
Quarter: 2025Q1

REPORT INFORMATION
  Report Type: Spontaneous
  Country: US (occurrence: None)
  Receive Date: 20250219
  Receipt Date: 20250219
  Transmission Date: 20250409
  Serious: Yes (Death)
  Sender: FDA-CTU
  Company Number: None

PATIENT
  Age: 75 Year
  Sex: Female
  Weight: 61.2 kg

DRUGS (3)
  1. CARBOPLATIN [Suspect]
     Active Substance: CARBOPLATIN
     Indication: Ovarian cancer
     Route: 042
  2. TAXOL [Suspect]
     Active Substance: PACLITAXEL
  3. PACLITAXEL [Concomitant]
     Active Substance: PACLITAXEL

REACTIONS (5)
  - Nausea [None]
  - Unresponsive to stimuli [None]
  - Agonal respiration [None]
  - Therapy cessation [None]
  - Cardio-respiratory arrest [None]

NARRATIVE: CASE EVENT DATE: 20250218
